FAERS Safety Report 5169470-8 (Version None)
Quarter: 2006Q4

REPORT INFORMATION
  Report Type: 
  Country: None (occurrence: None)
  Receive Date: 20061211
  Receipt Date: 20001214
  Transmission Date: 20070319
  Serious: Yes (Hospitalization)
  Sender: FDA-Public Use
  Company Number: FR-BOEHRINGER INGELHEIM GMBH, GERMANY-2000-FF-S0743

PATIENT
  Sex: Male
  Weight: 3.27 kg

DRUGS (12)
  1. VIRAMUNE [Suspect]
     Indication: PROPHYLAXIS AGAINST HIV INFECTION
     Route: 048
     Dates: start: 20000129, end: 20000129
  2. VIRAMUNE [Suspect]
     Indication: HIV INFECTION
     Route: 064
     Dates: start: 20000127, end: 20000127
  3. RETROVIR [Suspect]
     Indication: PROPHYLAXIS AGAINST HIV INFECTION
     Route: 048
     Dates: start: 20000127, end: 20000301
  4. RETROVIR [Suspect]
     Route: 064
     Dates: start: 20000101
  5. RETROVIR [Suspect]
     Route: 064
     Dates: start: 20000127, end: 20000127
  6. EPIVIR [Suspect]
     Indication: PROPHYLAXIS AGAINST HIV INFECTION
     Route: 048
     Dates: start: 20000127, end: 20000301
  7. SUSTIVA [Suspect]
     Indication: PROPHYLAXIS AGAINST HIV INFECTION
     Route: 064
     Dates: end: 19990101
  8. COMBIVIR [Suspect]
     Indication: PROPHYLAXIS AGAINST HIV INFECTION
     Route: 064
  9. IRON [Concomitant]
     Route: 064
  10. VITAMINS [Concomitant]
     Route: 064
  11. PEVARYL [Concomitant]
     Route: 064
  12. GINKOR [Concomitant]
     Route: 064

REACTIONS (13)
  - ANAEMIA MACROCYTIC [None]
  - BLOOD CREATINE PHOSPHOKINASE INCREASED [None]
  - BLOOD KETONE BODY INCREASED [None]
  - BLOOD PYRUVIC ACID INCREASED [None]
  - CAESAREAN SECTION [None]
  - DEVELOPMENTAL DELAY [None]
  - DRUG EXPOSURE DURING PREGNANCY [None]
  - HYPERLACTACIDAEMIA [None]
  - LACTIC ACIDOSIS [None]
  - NEONATAL DISORDER [None]
  - PLATELET COUNT INCREASED [None]
  - RETROGNATHIA [None]
  - STRABISMUS [None]
